FAERS Safety Report 16491336 (Version 6)
Quarter: 2020Q2

REPORT INFORMATION
  Report Type: Spontaneous
  Country: IT (occurrence: IT)
  Receive Date: 20190628
  Receipt Date: 20200407
  Transmission Date: 20200713
  Serious: Yes (Hospitalization)
  Sender: FDA-Public Use
  Company Number: IT-009507513-1906ITA011061

PATIENT
  Age: 79 Year
  Sex: Male

DRUGS (5)
  1. SIMVASTATIN. [Suspect]
     Active Substance: SIMVASTATIN
     Dosage: UNK
     Route: 065
  2. REPAGLINIDE. [Interacting]
     Active Substance: REPAGLINIDE
     Indication: TYPE 2 DIABETES MELLITUS
     Dosage: 2 MG, QD
  3. ABIRATERONE. [Interacting]
     Active Substance: ABIRATERONE ACETATE
     Indication: HORMONE-REFRACTORY PROSTATE CANCER
     Dosage: UNK
  4. PREDNISONE. [Concomitant]
     Active Substance: PREDNISONE
     Indication: ADRENOCORTICAL STEROID THERAPY
     Dosage: 10 MILLIGRAM, QD
  5. ABIRATERONE. [Interacting]
     Active Substance: ABIRATERONE ACETATE
     Indication: METASTASES TO PROSTATE

REACTIONS (3)
  - Hypoglycaemia [Unknown]
  - Drug level increased [Unknown]
  - Drug interaction [Unknown]
